FAERS Safety Report 4358235-2 (Version None)
Quarter: 2004Q2

REPORT INFORMATION
  Report Type: 
  Country: None (occurrence: None)
  Receive Date: 20040510
  Receipt Date: 20040419
  Transmission Date: 20050107
  Serious: Yes (Hospitalization)
  Sender: FDA-Public Use
  Company Number: F04200400113

PATIENT
  Sex: Female

DRUGS (3)
  1. ARIXTRA [Suspect]
     Indication: THROMBOSIS PROPHYLAXIS
     Dosage: 2.5MG OD SUBCUTANEOUS
     Route: 058
     Dates: start: 20030827, end: 20030901
  2. HORMONE REPLACEMENT THERAPY [Concomitant]
  3. UNFRACTIONATED HEPARIN (HEPARIN) [Concomitant]

REACTIONS (3)
  - DRUG INEFFECTIVE [None]
  - GASTROINTESTINAL HAEMORRHAGE [None]
  - PULMONARY EMBOLISM [None]
